FAERS Safety Report 25469291 (Version 2)
Quarter: 2025Q2

REPORT INFORMATION
  Report Type: Report from Study
  Country: US (occurrence: US)
  Receive Date: 20250623
  Receipt Date: 20250624
  Transmission Date: 20250716
  Serious: No
  Sender: BRISTOL-MYERS SQUIBB COMPANY
  Company Number: US-BRISTOL-MYERS SQUIBB COMPANY-2025-088987

PATIENT
  Age: 72 Year
  Sex: Male
  Weight: 74.84 kg

DRUGS (2)
  1. ELIQUIS [Suspect]
     Active Substance: APIXABAN
     Indication: Atrial fibrillation
     Route: 048
     Dates: start: 202506
  2. ELIQUIS [Suspect]
     Active Substance: APIXABAN
     Route: 048
     Dates: start: 202506

REACTIONS (6)
  - Rhinorrhoea [Unknown]
  - Off label use [Unknown]
  - Cough [Unknown]
  - Overweight [Unknown]
  - Memory impairment [Unknown]
  - Inappropriate schedule of product administration [Unknown]

NARRATIVE: CASE EVENT DATE: 20250601
